FAERS Safety Report 11672967 (Version 1)
Quarter: 2015Q4

REPORT INFORMATION
  Report Type: Spontaneous
  Country: US (occurrence: US)
  Receive Date: 20151027
  Receipt Date: 20151027
  Transmission Date: 20160304
  Serious: No
  Sender: FDA-Public Use
  Company Number: US-ELI_LILLY_AND_COMPANY-US201007001680

PATIENT
  Age: 72 Year
  Sex: Female

DRUGS (1)
  1. FORTEO [Suspect]
     Active Substance: TERIPARATIDE
     Dosage: 20 UG, DAILY (1/D)
     Dates: start: 20100702

REACTIONS (13)
  - Oesophageal disorder [Unknown]
  - Memory impairment [Unknown]
  - Oesophageal pain [Unknown]
  - Cerebral disorder [Unknown]
  - Anaemia [Unknown]
  - Dizziness [Unknown]
  - Cranial nerve disorder [Unknown]
  - Feeling abnormal [Unknown]
  - Bone marrow disorder [Unknown]
  - Dyspnoea [Unknown]
  - Gastrooesophageal reflux disease [Not Recovered/Not Resolved]
  - Fall [Unknown]
  - Tinnitus [Unknown]

NARRATIVE: CASE EVENT DATE: 20100702
